FAERS Safety Report 5087354-0 (Version None)
Quarter: 2006Q3

REPORT INFORMATION
  Report Type: 
  Country: None (occurrence: None)
  Receive Date: 20060823
  Receipt Date: 20060823
  Transmission Date: 20061208
  Serious: Yes (Hospitalization)
  Sender: FDA-Public Use
  Company Number: None

PATIENT
  Age: 70 Year
  Sex: Male
  Weight: 78.9 kg

DRUGS (1)
  1. PREGABALIN 300MG [Suspect]
     Indication: PAIN
     Dosage: 300MG    BID    PO
     Route: 048

REACTIONS (4)
  - CONFUSIONAL STATE [None]
  - DELIRIUM [None]
  - IMPAIRED HEALING [None]
  - MENTAL STATUS CHANGES [None]
